FAERS Safety Report 17045543 (Version 1)
Quarter: 2019Q4

REPORT INFORMATION
  Report Type: Other
  Country: US (occurrence: US)
  Receive Date: 20191118
  Receipt Date: 20191118
  Transmission Date: 20200122
  Serious: No
  Sender: FDA-Public Use
  Company Number: US-LEADIANT BIOSCIENCES INC-2019STPI000457

PATIENT

DRUGS (4)
  1. TOBRA [TOBRAMYCIN] [Concomitant]
  2. CYSTARAN [Suspect]
     Active Substance: CYSTEAMINE HYDROCHLORIDE
     Indication: CYSTINOSIS
     Dosage: UNK, EVERY HOUR WHILE AWAKE
     Route: 047
     Dates: start: 20151028
  3. DEXAME [Concomitant]
  4. ESTRADIOL. [Concomitant]
     Active Substance: ESTRADIOL

REACTIONS (3)
  - Product dose omission [Unknown]
  - Eye irritation [Unknown]
  - Headache [Unknown]
